FAERS Safety Report 7051874-X (Version None)
Quarter: 2010Q4

REPORT INFORMATION
  Report Type: 
  Country: None (occurrence: None)
  Receive Date: 20101019
  Receipt Date: 20101015
  Transmission Date: 20110411
  Serious: Yes (Other)
  Sender: FDA-Public Use
  Company Number: GXKR2010DE11603

PATIENT
  Age: 72 Year
  Sex: Male

DRUGS (1)
  1. NAPROXEN HEXAL (NGX) [Suspect]
     Dosage: 250 MG, UNK
     Route: 048

REACTIONS (1)
  - RETINAL DETACHMENT [None]
